FAERS Safety Report 9817789 (Version 1)
Quarter: 2013Q4

REPORT INFORMATION
  Report Type: Spontaneous
  Country: US (occurrence: None)
  Receive Date: 20131223
  Receipt Date: 20131223
  Transmission Date: 20140711
  Serious: No
  Sender: FDA-Public Use
  Company Number: 219632

PATIENT
  Age: 63 Year
  Sex: Female

DRUGS (4)
  1. PICATO [Suspect]
     Indication: ACTINIC KERATOSIS
     Dosage: (1 IN 1 D), TOPICAL
     Dates: start: 20121106
  2. VITAMINS (MULTIVITAMINS, PLAIN) [Concomitant]
  3. BABY ASA (ACETYLSALICYLIC ACID) [Concomitant]
  4. HORMONE REPLACEMENT (HORMONES NOS) [Concomitant]

REACTIONS (4)
  - Application site vesicles [None]
  - Application site erythema [None]
  - Incorrect drug administration duration [None]
  - Drug administered at inappropriate site [None]
